FAERS Safety Report 21061340 (Version 4)
Quarter: 2022Q4

REPORT INFORMATION
  Report Type: Spontaneous
  Country: US (occurrence: US)
  Receive Date: 20220709
  Receipt Date: 20221127
  Transmission Date: 20230112
  Serious: Yes (Other)
  Sender: FDA-Public Use
  Company Number: US-BRISTOL-MYERS SQUIBB COMPANY-2022-069711

PATIENT
  Age: 72 Year
  Sex: Female
  Weight: 75.3 kg

DRUGS (3)
  1. POMALYST [Suspect]
     Active Substance: POMALIDOMIDE
     Indication: Plasma cell myeloma
     Dosage: D1-21 EVERY 28 DAYS
     Route: 048
     Dates: start: 20200401
  2. POMALYST [Suspect]
     Active Substance: POMALIDOMIDE
     Dosage: D1-21 EVERY 28 DAYS
     Route: 048
     Dates: start: 20211010, end: 20220825
  3. POMALYST [Suspect]
     Active Substance: POMALIDOMIDE
     Dosage: DAILY DAYS 1-14 EVERY 21 DAYS
     Route: 048
     Dates: start: 20200401

REACTIONS (6)
  - Neuropathy peripheral [Recovering/Resolving]
  - Urinary tract infection [Recovered/Resolved]
  - Neutrophil count decreased [Recovering/Resolving]
  - Fatigue [Recovering/Resolving]
  - White blood cell count decreased [Recovering/Resolving]
  - Off label use [Unknown]
